FAERS Safety Report 5381336-7 (Version None)
Quarter: 2007Q2

REPORT INFORMATION
  Report Type: 
  Country: None (occurrence: None)
  Receive Date: 20070629
  Receipt Date: 20061026
  Transmission Date: 20071010
  Serious: Yes (Other)
  Sender: FDA-Public Use
  Company Number: 2006132023

PATIENT
  Sex: Female
  Weight: 86.1834 kg

DRUGS (3)
  1. ZOLOFT [Suspect]
     Indication: DEPRESSION
     Dosage: 50 MG (50 MG, 1 IN 1 D), ORAL
     Route: 048
     Dates: start: 20020901, end: 20061018
  2. VYTORIN [Suspect]
     Indication: BLOOD CHOLESTEROL
     Dates: start: 20061001, end: 20061018
  3. SYNTHROID (LEVOTHYORXINE SODIUM) [Concomitant]

REACTIONS (4)
  - BLOOD CHOLESTEROL INCREASED [None]
  - DEPRESSED MOOD [None]
  - FEELING ABNORMAL [None]
  - KERATOCONJUNCTIVITIS SICCA [None]
